FAERS Safety Report 18213374 (Version 1)
Quarter: 2020Q3

REPORT INFORMATION
  Report Type: Spontaneous
  Country: US (occurrence: US)
  Receive Date: 20200831
  Receipt Date: 20200831
  Transmission Date: 20201103
  Serious: No
  Sender: FDA-Public Use
  Company Number: US-ASTRAZENECA-2020SE98289

PATIENT
  Age: 413 Month
  Sex: Male
  Weight: 138.3 kg

DRUGS (14)
  1. MULTIVITAMIN [Concomitant]
     Active Substance: VITAMINS
  2. MELATONIN [Concomitant]
     Active Substance: MELATONIN
  3. BENZTROPINE. [Concomitant]
     Active Substance: BENZTROPINE
     Indication: SALIVARY HYPERSECRETION
  4. LAMICTAL [Concomitant]
     Active Substance: LAMOTRIGINE
  5. CLOZARIL [Concomitant]
     Active Substance: CLOZAPINE
  6. LEVEMIR [Concomitant]
     Active Substance: INSULIN DETEMIR
     Route: 058
  7. FISH OIL [Concomitant]
     Active Substance: FISH OIL
  8. CALCIUM [Concomitant]
     Active Substance: CALCIUM
  9. INVOKANA [Concomitant]
     Active Substance: CANAGLIFLOZIN
     Indication: DIABETES MELLITUS
     Route: 048
  10. BYDUREON BCISE [Suspect]
     Active Substance: EXENATIDE
     Indication: TYPE 2 DIABETES MELLITUS
     Route: 058
  11. KLONOPIN [Concomitant]
     Active Substance: CLONAZEPAM
  12. COREG [Concomitant]
     Active Substance: CARVEDILOL
  13. HUMALIN [Concomitant]
     Active Substance: INSULIN NOS
     Indication: BLOOD INSULIN
     Dosage: AS REQUIRED
     Route: 058
  14. VALSARTAN. [Concomitant]
     Active Substance: VALSARTAN
     Indication: BLOOD PRESSURE MEASUREMENT

REACTIONS (6)
  - Injection site haemorrhage [Recovered/Resolved]
  - Product dose omission issue [Recovered/Resolved]
  - Lack of injection site rotation [Unknown]
  - Device leakage [Unknown]
  - Incorrect dose administered by device [Unknown]
  - Device issue [Unknown]

NARRATIVE: CASE EVENT DATE: 202005
